APPROVED DRUG PRODUCT: SYNJARDY
Active Ingredient: EMPAGLIFLOZIN; METFORMIN HYDROCHLORIDE
Strength: 5MG;1GM
Dosage Form/Route: TABLET;ORAL
Application: N206111 | Product #002
Applicant: BOEHRINGER INGELHEIM PHARMACEUTICALS INC
Approved: Aug 26, 2015 | RLD: Yes | RS: No | Type: RX

PATENTS:
Patent 12433906 | Expires: Apr 3, 2034
Patent 11666590 | Expires: Apr 3, 2034
Patent 12263153 | Expires: Apr 3, 2034
Patent 12433906 | Expires: Apr 3, 2034
Patent 12433906 | Expires: Apr 3, 2034
Patent 12433906 | Expires: Apr 3, 2034
Patent 12433906 | Expires: Apr 3, 2034
Patent 12427162 | Expires: Apr 3, 2034
Patent 9949997 | Expires: May 17, 2034
Patent 9949997 | Expires: May 17, 2034
Patent 10258637 | Expires: Apr 3, 2034
Patent 11833166 | Expires: Apr 3, 2034
Patent 11833166 | Expires: Apr 3, 2034
Patent 11090323 | Expires: Apr 3, 2034
Patent 11813275 | Expires: Apr 3, 2034
Patent 12115179 | Expires: Feb 11, 2030
Patent 7579449 | Expires: Aug 1, 2028
Patent 10610489 | Expires: Sep 30, 2030
Patent 7713938 | Expires: Apr 15, 2027
Patent 7713938*PED | Expires: Oct 15, 2027
Patent 7579449*PED | Expires: Feb 1, 2029
Patent 10258637*PED | Expires: Oct 3, 2034
Patent 11813275*PED | Expires: Oct 3, 2034
Patent 12115179*PED | Expires: Aug 11, 2030
Patent 12433906*PED | Expires: Oct 3, 2034
Patent 11833166*PED | Expires: Oct 3, 2034
Patent 11090323*PED | Expires: Oct 3, 2034
Patent 10610489*PED | Expires: Mar 30, 2031
Patent 9949997*PED | Expires: Nov 17, 2034

EXCLUSIVITY:
Code: NPP | Date: Jun 20, 2026
Code: PED | Date: Dec 20, 2026